FAERS Safety Report 22259852 (Version 1)
Quarter: 2023Q2

REPORT INFORMATION
  Report Type: Spontaneous
  Country: GB (occurrence: GB)
  Receive Date: 20230427
  Receipt Date: 20230427
  Transmission Date: 20230722
  Serious: Yes (Other)
  Sender: FDA-Public Use
  Company Number: GB-MHRA-MED-202304100849085470-BJHFR

PATIENT
  Sex: Female

DRUGS (5)
  1. LANSOPRAZOLE [Suspect]
     Active Substance: LANSOPRAZOLE
     Indication: Tooth infection
     Dosage: 400 MILLIGRAM, TID
     Dates: start: 20230331, end: 20230410
  2. METRONIDAZOLE [Suspect]
     Active Substance: METRONIDAZOLE
     Indication: Tooth infection
     Dosage: 400 MILLIGRAM, TID
     Dates: start: 20230331, end: 20230410
  3. CLARITHROMYCIN [Suspect]
     Active Substance: CLARITHROMYCIN
     Indication: Tooth infection
     Dosage: 400 MILLIGRAM, TID
     Dates: start: 20230331, end: 20230410
  4. CARBAMAZEPINE [Concomitant]
     Active Substance: CARBAMAZEPINE
     Indication: Trigeminal neuralgia
     Dates: start: 2020
  5. PREGABALIN [Concomitant]
     Active Substance: PREGABALIN
     Indication: Trigeminal neuralgia
     Dates: start: 202209

REACTIONS (1)
  - Chromaturia [Not Recovered/Not Resolved]

NARRATIVE: CASE EVENT DATE: 20230410
